FAERS Safety Report 6167580-X (Version None)
Quarter: 2009Q2

REPORT INFORMATION
  Report Type: 
  Country: None (occurrence: None)
  Receive Date: 20090424
  Receipt Date: 20090421
  Transmission Date: 20091009
  Serious: Yes (Death, Hospitalization, Other)
  Sender: FDA-Public Use
  Company Number: CH-ROXANE LABORATORIES, INC.-2009-RO-00398RO

PATIENT
  Age: 74 Year
  Sex: Female
  Weight: 51 kg

DRUGS (8)
  1. MORPHINE [Suspect]
     Indication: ANALGESIA
     Dosage: 2.62MG
     Route: 008
  2. LIDOCAINE [Suspect]
     Indication: EPIDURAL TEST DOSE
     Route: 008
  3. ADRENALINE [Suspect]
     Indication: EPIDURAL TEST DOSE
     Route: 008
  4. CLONIDINE [Suspect]
     Indication: ANALGESIA
     Dosage: 78.54MCG
     Route: 008
  5. BUPIVACAINE [Suspect]
     Indication: ANALGESIA
     Route: 008
  6. BUPIVACAINE [Suspect]
     Route: 008
  7. HIGH DOSE OPIATE THERAPY [Concomitant]
     Indication: CHEST PAIN
  8. ANTIBIOTICS [Concomitant]
     Indication: PNEUMONIA

REACTIONS (11)
  - CATHETER SITE NECROSIS [None]
  - DEATH [None]
  - DELIRIUM [None]
  - IMPAIRED HEALING [None]
  - IMPLANT SITE ULCER [None]
  - METASTASES TO SPINE [None]
  - RESPIRATORY DEPRESSION [None]
  - STAPHYLOCOCCAL IDENTIFICATION TEST POSITIVE [None]
  - STAPHYLOCOCCAL INFECTION [None]
  - THORACIC VERTEBRAL FRACTURE [None]
  - ULCER [None]
